FAERS Safety Report 11369125 (Version 1)
Quarter: 2015Q3

REPORT INFORMATION
  Report Type: Spontaneous
  Country: US (occurrence: None)
  Receive Date: 20150811
  Receipt Date: 20150811
  Transmission Date: 20151125
  Serious: Yes (Life-Threatening, Hospitalization)
  Sender: FDA-Public Use
  Company Number: None

PATIENT
  Age: 96 Year
  Sex: Male
  Weight: 81.8 kg

DRUGS (1)
  1. LISINOPRIL. [Suspect]
     Active Substance: LISINOPRIL
     Indication: HYPERTENSION
     Route: 048
     Dates: start: 20131121, end: 20150518

REACTIONS (4)
  - Hypersensitivity [None]
  - Swollen tongue [None]
  - Lip swelling [None]
  - Anaphylactic reaction [None]

NARRATIVE: CASE EVENT DATE: 20150207
